FAERS Safety Report 9451673 (Version 1)
Quarter: 2013Q3

REPORT INFORMATION
  Report Type: Spontaneous
  Country: JP (occurrence: JP)
  Receive Date: 20130812
  Receipt Date: 20130812
  Transmission Date: 20140515
  Serious: Yes (Other)
  Sender: FDA-Public Use
  Company Number: JP-PFIZER INC-2013218647

PATIENT
  Age: 70 Year
  Sex: Male
  Weight: 59.3 kg

DRUGS (2)
  1. CARBOPLATIN [Suspect]
     Indication: NON-SMALL CELL LUNG CANCER
     Dosage: AUC OF 6 ON DAY 1
     Dates: start: 200902
  2. PACLITAXEL [Suspect]
     Indication: NON-SMALL CELL LUNG CANCER
     Dosage: 80 MG/M2 ON DAYS 1, 8, 15, WEEKLY
     Dates: start: 200902

REACTIONS (4)
  - Lung infection [Unknown]
  - Bone marrow failure [Unknown]
  - Leukopenia [Unknown]
  - Neutropenia [Unknown]
